FAERS Safety Report 5147153-8 (Version None)
Quarter: 2006Q4

REPORT INFORMATION
  Report Type: 
  Country: None (occurrence: None)
  Receive Date: 20061103
  Receipt Date: 20061026
  Transmission Date: 20070319
  Serious: Yes (Hospitalization)
  Sender: FDA-Public Use
  Company Number: HQWYE638226OCT06

PATIENT
  Age: 45 Year
  Sex: Female

DRUGS (1)
  1. EUPANTOL (PANTOPRAZOLE, UNSPEC) [Suspect]

REACTIONS (1)
  - CYTOLYTIC HEPATITIS [None]
